FAERS Safety Report 11134450 (Version 2)
Quarter: 2015Q2

REPORT INFORMATION
  Report Type: Report from Study
  Country: US (occurrence: US)
  Receive Date: 20150525
  Receipt Date: 20150623
  Transmission Date: 20150821
  Serious: Yes (Hospitalization)
  Sender: FDA-Public Use
  Company Number: US-ROCHE-1202244

PATIENT
  Age: 81 Year
  Sex: Female
  Weight: 91 kg

DRUGS (3)
  1. BEVACIZUMAB [Suspect]
     Active Substance: BEVACIZUMAB
     Indication: ENDOMETRIAL ADENOCARCINOMA
     Dosage: LAST DOSE ADMINISTERED ON 15/JAN/2013 WAS 1223 MG?LAST DOSE ADMINISTERED ON 28/APR/2015 WAS 1359 MG
     Route: 042
     Dates: start: 20100413
  2. PACLITAXEL. [Suspect]
     Active Substance: PACLITAXEL
     Indication: ENDOMETRIAL ADENOCARCINOMA
     Dosage: OVER 3 HOURS ON DAY 1 X 6 CYCLES
     Route: 042
  3. CARBOPLATIN. [Suspect]
     Active Substance: CARBOPLATIN
     Indication: ENDOMETRIAL ADENOCARCINOMA
     Dosage: AUC=6 OVER 30 MINUTES ON DAY 1 X 6 CYCLES
     Route: 042

REACTIONS (2)
  - Cholecystitis [Unknown]
  - Lung infection [Recovering/Resolving]

NARRATIVE: CASE EVENT DATE: 20130106
